FAERS Safety Report 6042123-X (Version None)
Quarter: 2009Q1

REPORT INFORMATION
  Report Type: 
  Country: None (occurrence: None)
  Receive Date: 20090116
  Receipt Date: 20090109
  Transmission Date: 20090719
  Serious: Yes (Hospitalization)
  Sender: FDA-Public Use
  Company Number: PHHY2008JP33187

PATIENT
  Age: 64 Year
  Sex: Male

DRUGS (2)
  1. LOPRESOR [Suspect]
  2. DEXTROMETHORPHAN HYDROBROMIDE [Suspect]
     Indication: NASOPHARYNGITIS
     Dosage: 30 MG/DAY
     Route: 048

REACTIONS (2)
  - MYOCLONUS [None]
  - VOMITING [None]
